FAERS Safety Report 13365335 (Version 1)
Quarter: 2017Q1

REPORT INFORMATION
  Report Type: Spontaneous
  Country: US (occurrence: US)
  Receive Date: 20170323
  Receipt Date: 20170323
  Transmission Date: 20170429
  Serious: No
  Sender: FDA-Public Use
  Company Number: US-WARNER CHILCOTT-2017-000143

PATIENT
  Age: 80 Year
  Sex: Female
  Weight: 61.22 kg

DRUGS (4)
  1. ESTRACE [Suspect]
     Active Substance: ESTRADIOL
     Indication: HORMONE LEVEL ABNORMAL
     Dosage: 4 G, EVERY OTHER NIGHT
     Route: 067
     Dates: start: 20170112
  2. ESTRACE [Suspect]
     Active Substance: ESTRADIOL
     Indication: BLADDER DISORDER
  3. OTHER LIPID MODIFYING AGENTS [Concomitant]
     Active Substance: UNSPECIFIED INGREDIENT
  4. ANTIHYPERTENSIVES [Concomitant]
     Active Substance: UNSPECIFIED INGREDIENT

REACTIONS (3)
  - Product use issue [Unknown]
  - Nipple pain [Not Recovered/Not Resolved]
  - Nipple disorder [Not Recovered/Not Resolved]

NARRATIVE: CASE EVENT DATE: 201701
